FAERS Safety Report 6339477-3 (Version None)
Quarter: 2009Q3

REPORT INFORMATION
  Report Type: 
  Country: None (occurrence: None)
  Receive Date: 20090827
  Receipt Date: 20090615
  Transmission Date: 20100115
  Serious: No
  Sender: FDA-Public Use
  Company Number: 001079

PATIENT
  Sex: Male

DRUGS (2)
  1. LACOSAMIDE [Suspect]
     Indication: DRUG USE FOR UNKNOWN INDICATION
  2. ANTIEPILEPTICS [Concomitant]

REACTIONS (2)
  - AGITATION [None]
  - FEELING ABNORMAL [None]
